FAERS Safety Report 17708426 (Version 1)
Quarter: 2020Q2

REPORT INFORMATION
  Report Type: Spontaneous
  Country: NL (occurrence: NL)
  Receive Date: 20200426
  Receipt Date: 20200426
  Transmission Date: 20200714
  Serious: Yes (Other)
  Sender: FDA-Public Use
  Company Number: NVSC2020NL109971

PATIENT
  Sex: Female
  Weight: 51 kg

DRUGS (4)
  1. IMIPRAMINE [Suspect]
     Active Substance: IMIPRAMINE
     Indication: PRODUCT USED FOR UNKNOWN INDICATION
     Dosage: 20 MG, QD
     Route: 065
     Dates: start: 201908, end: 20200107
  2. DEPAKINE ZUUR [Suspect]
     Active Substance: VALPROIC ACID
     Indication: BEHAVIOUR DISORDER
     Dosage: 500 MG, Q12H
     Route: 065
     Dates: start: 2013
  3. DEPAKINE ZUUR [Suspect]
     Active Substance: VALPROIC ACID
     Dosage: 300 MG, Q12H
     Route: 065
     Dates: start: 201910
  4. PAROXETINE. [Suspect]
     Active Substance: PAROXETINE
     Indication: DEPRESSED MOOD
     Dosage: 30 MG, QD
     Route: 065
     Dates: start: 20141225

REACTIONS (1)
  - Dysphagia [Recovering/Resolving]
